FAERS Safety Report 17133352 (Version 1)
Quarter: 2019Q4

REPORT INFORMATION
  Report Type: Spontaneous
  Country: US (occurrence: US)
  Receive Date: 20191116
  Receipt Date: 20191116
  Transmission Date: 20200122
  Serious: Yes (Hospitalization)
  Sender: FDA-Public Use
  Company Number: None

PATIENT
  Age: 29 Year
  Sex: Female
  Weight: 54 kg

DRUGS (2)
  1. DOXORUBICIN HYDROCHLORIDE. [Suspect]
     Active Substance: DOXORUBICIN HYDROCHLORIDE
     Dates: end: 20191030
  2. CYCLOPHOSPHAMIDE. [Suspect]
     Active Substance: CYCLOPHOSPHAMIDE
     Dates: end: 20191030

REACTIONS (10)
  - Pyrexia [None]
  - Rectal haemorrhage [None]
  - Febrile neutropenia [None]
  - Anaemia [None]
  - Constipation [None]
  - Chills [None]
  - Neutrophil count abnormal [None]
  - Haematochezia [None]
  - Fatigue [None]
  - Occult blood positive [None]

NARRATIVE: CASE EVENT DATE: 20191108
